FAERS Safety Report 6040591-0 (Version None)
Quarter: 2009Q1

REPORT INFORMATION
  Report Type: 
  Country: None (occurrence: None)
  Receive Date: 20090116
  Receipt Date: 20080411
  Transmission Date: 20090719
  Serious: No
  Sender: FDA-Public Use
  Company Number: US-BRISTOL-MYERS SQUIBB COMPANY-14148209

PATIENT
  Age: 34 Year
  Sex: Female

DRUGS (4)
  1. ABILIFY [Suspect]
     Dosage: RECEIVED 30MG FOR ONE TO TWO MONTHS
  2. TEGRETOL [Concomitant]
  3. EFFEXOR [Concomitant]
  4. SEROQUEL [Concomitant]

REACTIONS (2)
  - DYSARTHRIA [None]
  - MUSCLE TWITCHING [None]
